FAERS Safety Report 9632369 (Version 1)
Quarter: 2013Q4

REPORT INFORMATION
  Report Type: Spontaneous
  Country: US (occurrence: None)
  Receive Date: 20131018
  Receipt Date: 20131018
  Transmission Date: 20140711
  Serious: Yes (Hospitalization)
  Sender: FDA-Public Use
  Company Number: None

PATIENT
  Age: 90 Year
  Sex: Female
  Weight: 63 kg

DRUGS (13)
  1. ASPIRIN [Suspect]
     Dosage: PRIOR TO ADMISSION
     Route: 048
  2. ENOXAPARIN [Suspect]
     Route: 058
  3. ACETAMINOPHEN [Concomitant]
  4. ALBUTEROL/IPRATROPIM NEBULIZER [Concomitant]
  5. ATENOLOL [Concomitant]
  6. DOCUSATE/SENNA [Concomitant]
  7. FERROUS SULFATE [Concomitant]
  8. LEVOTHYROXINE [Concomitant]
  9. NIFEDIPINE SL [Concomitant]
  10. POLYETHYLENE GLYCOL [Concomitant]
  11. TRAMADOL [Concomitant]
  12. MULTIVITAMIN [Concomitant]
  13. CHOLECALCIFEROL WAFER [Concomitant]

REACTIONS (7)
  - Joint dislocation [None]
  - Melaena [None]
  - Gastritis [None]
  - Gastritis erosive [None]
  - Urinary tract infection [None]
  - Haemoglobin decreased [None]
  - Haematocrit decreased [None]
